FAERS Safety Report 6635520-2 (Version None)
Quarter: 2010Q1

REPORT INFORMATION
  Report Type: 
  Country: None (occurrence: None)
  Receive Date: 20100315
  Receipt Date: 20100305
  Transmission Date: 20100710
  Serious: Yes (Hospitalization, Other)
  Sender: FDA-Public Use
  Company Number: US-ABBOTT-10P-163-0630767-00

PATIENT
  Sex: Male
  Weight: 85.352 kg

DRUGS (3)
  1. LUPRON DEPOT [Suspect]
     Indication: PROSTATE CANCER
     Dosage: UNSURE OF STRENGTH
     Route: 050
     Dates: start: 20060101, end: 20060101
  2. TENEX [Concomitant]
     Indication: HYPERTENSION
     Route: 048
     Dates: end: 20060101
  3. COUMADIN [Concomitant]
     Indication: MESENTERIC VEIN THROMBOSIS
     Route: 048
     Dates: end: 20060101

REACTIONS (9)
  - ALOPECIA [None]
  - ASTHENIA [None]
  - BLOOD COUNT ABNORMAL [None]
  - CARDIAC ARREST [None]
  - HAEMORRHAGE [None]
  - INCORRECT DRUG ADMINISTRATION DURATION [None]
  - MUSCLE ATROPHY [None]
  - VARICES OESOPHAGEAL [None]
  - WEIGHT DECREASED [None]
